FAERS Safety Report 8369006-4 (Version None)
Quarter: 2012Q2

REPORT INFORMATION
  Report Type: 
  Country: None (occurrence: None)
  Receive Date: 20120518
  Receipt Date: 20120503
  Transmission Date: 20120825
  Serious: Yes (Other)
  Sender: FDA-Public Use
  Company Number: US-PFIZER INC-2012113231

PATIENT
  Sex: Male

DRUGS (5)
  1. OXYCONTIN [Suspect]
     Indication: ANKLE FRACTURE
  2. MORPHINE SULFATE [Suspect]
     Indication: PAIN
     Dosage: 30 MG, UNK
     Route: 048
     Dates: start: 20120401, end: 20120426
  3. MORPHINE SULFATE [Suspect]
     Indication: ANKLE FRACTURE
     Dosage: UNK
     Route: 042
     Dates: end: 20120426
  4. MORPHINE SULFATE [Suspect]
     Dosage: UNK
     Route: 042
     Dates: start: 20120401, end: 20120426
  5. OXYCONTIN [Suspect]
     Indication: PAIN
     Dosage: 20 MG, 4X/DAY
     Route: 048
     Dates: start: 20120405, end: 20120426

REACTIONS (21)
  - DRUG WITHDRAWAL SYNDROME [None]
  - AGITATION [None]
  - BLOOD PRESSURE ABNORMAL [None]
  - MYALGIA [None]
  - TREMOR [None]
  - IRRITABILITY [None]
  - ANXIETY [None]
  - HALLUCINATION [None]
  - FEELING JITTERY [None]
  - HEADACHE [None]
  - PILOERECTION [None]
  - DYSSTASIA [None]
  - INSOMNIA [None]
  - RESTLESSNESS [None]
  - NAUSEA [None]
  - RHINORRHOEA [None]
  - CHILLS [None]
  - PALPITATIONS [None]
  - HYPERHIDROSIS [None]
  - ASTHENIA [None]
  - DRUG HYPERSENSITIVITY [None]
